FAERS Safety Report 9456865 (Version 2)
Quarter: 2013Q4

REPORT INFORMATION
  Report Type: Spontaneous
  Country: SE (occurrence: SE)
  Receive Date: 20130813
  Receipt Date: 20131212
  Transmission Date: 20140711
  Serious: Yes (Other)
  Sender: FDA-Public Use
  Company Number: SE-WATSON-2013-14482

PATIENT
  Age: 79 Year
  Sex: Female

DRUGS (1)
  1. METFORMIN ACTAVIS [Suspect]
     Indication: TYPE 1 DIABETES MELLITUS
     Dosage: UNK, UNKNOWN
     Route: 065

REACTIONS (4)
  - Myocardial infarction [Unknown]
  - Pneumonia [Unknown]
  - Sepsis [Unknown]
  - Renal failure [Unknown]
